FAERS Safety Report 21963933 (Version 2)
Quarter: 2023Q2

REPORT INFORMATION
  Report Type: Spontaneous
  Country: US (occurrence: US)
  Receive Date: 20230207
  Receipt Date: 20230413
  Transmission Date: 20230721
  Serious: Yes (Death, Hospitalization, Other)
  Sender: FDA-Public Use
  Company Number: US-BAXTER-2023BAX011959

PATIENT
  Age: 13 Year
  Sex: Female

DRUGS (8)
  1. DOXIL [Suspect]
     Active Substance: DOXORUBICIN HYDROCHLORIDE
     Indication: Hepatocellular carcinoma
     Dosage: 50 MG/M2 FIRST SINGLE DOSE
     Route: 065
     Dates: start: 20221004
  2. DOXIL [Suspect]
     Active Substance: DOXORUBICIN HYDROCHLORIDE
     Dosage: 40 MG/M2
     Route: 065
     Dates: start: 20221101
  3. CABOMETYX [Suspect]
     Active Substance: CABOZANTINIB S-MALATE
     Indication: Hepatocellular carcinoma
     Dosage: 40 MG, QD
     Route: 065
     Dates: start: 20221006, end: 20221013
  4. CABOMETYX [Suspect]
     Active Substance: CABOZANTINIB S-MALATE
     Dosage: 20 MG, QD
     Route: 065
  5. CABOMETYX [Suspect]
     Active Substance: CABOZANTINIB S-MALATE
     Dosage: SINGLE DOSE
     Route: 065
     Dates: start: 20221201, end: 20221202
  6. FENTANYL [Concomitant]
     Active Substance: FENTANYL
     Route: 065
  7. SYNTHROID [Concomitant]
     Active Substance: LEVOTHYROXINE SODIUM
     Route: 065
  8. SORAFENIB [Concomitant]
     Active Substance: SORAFENIB
     Route: 065

REACTIONS (11)
  - Cardiac failure congestive [Fatal]
  - Intracardiac thrombus [Unknown]
  - Cancer pain [Recovering/Resolving]
  - Metastases to bone [Recovering/Resolving]
  - Hepatic cancer [Unknown]
  - Disease progression [Unknown]
  - Orthopnoea [Unknown]
  - Intracardiac mass [Unknown]
  - Dyspnoea [Unknown]
  - Cardiac valve vegetation [Unknown]
  - Pleural effusion [Unknown]

NARRATIVE: CASE EVENT DATE: 20221115
